FAERS Safety Report 6832816-6 (Version None)
Quarter: 2010Q3

REPORT INFORMATION
  Report Type: 
  Country: None (occurrence: None)
  Receive Date: 20100712
  Receipt Date: 20070321
  Transmission Date: 20110219
  Serious: No
  Sender: FDA-Public Use
  Company Number: US-PFIZER INC-2007024268

PATIENT
  Sex: Female
  Weight: 53.98 kg

DRUGS (7)
  1. CHANTIX [Suspect]
     Indication: SMOKING CESSATION THERAPY
     Dates: start: 20070301
  2. NORVASC [Concomitant]
  3. ZIAC [Concomitant]
  4. ALLEGRA [Concomitant]
  5. CELEBREX [Concomitant]
  6. VITAMINS [Concomitant]
  7. ACIPHEX [Concomitant]

REACTIONS (4)
  - ABNORMAL DREAMS [None]
  - FATIGUE [None]
  - NAUSEA [None]
  - VOMITING [None]
